FAERS Safety Report 6082297-8 (Version None)
Quarter: 2009Q1

REPORT INFORMATION
  Report Type: 
  Country: None (occurrence: None)
  Receive Date: 20090218
  Receipt Date: 20090213
  Transmission Date: 20090719
  Serious: Yes (Hospitalization)
  Sender: FDA-Public Use
  Company Number: CN-ASTRAZENECA-2009AP01171

PATIENT
  Age: 41 Year
  Sex: Female

DRUGS (1)
  1. IRESSA [Suspect]
     Indication: LUNG CANCER METASTATIC
     Route: 048
     Dates: start: 20090210, end: 20090212

REACTIONS (4)
  - COUGH [None]
  - DYSPNOEA [None]
  - SYNCOPE [None]
  - VOMITING [None]
